FAERS Safety Report 9355798 (Version 1)
Quarter: 2013Q2

REPORT INFORMATION
  Report Type: Spontaneous
  Country: US (occurrence: US)
  Receive Date: 20130619
  Receipt Date: 20130619
  Transmission Date: 20140414
  Serious: Yes (Hospitalization, Other)
  Sender: FDA-Public Use
  Company Number: PHHY2013US060855

PATIENT
  Age: 48 Year
  Sex: Female

DRUGS (3)
  1. GABAPENTIN [Suspect]
  2. DIAZEPAM [Suspect]
  3. HYDROCODONE [Suspect]

REACTIONS (4)
  - Somnolence [Unknown]
  - Dry mouth [Unknown]
  - Urinary retention [Unknown]
  - Drug abuse [Unknown]
